FAERS Safety Report 7837468-4 (Version None)
Quarter: 2011Q4

REPORT INFORMATION
  Report Type: 
  Country: None (occurrence: None)
  Receive Date: 20111024
  Receipt Date: 20110420
  Transmission Date: 20120403
  Serious: No
  Sender: FDA-Public Use
  Company Number: US-ABBOTT-11P-163-0717777-00

PATIENT
  Sex: Female
  Weight: 74.456 kg

DRUGS (1)
  1. LUPRON DEPOT [Suspect]
     Indication: ENDOMETRIOSIS
     Route: 050
     Dates: start: 20110221, end: 20110221

REACTIONS (2)
  - PAIN IN EXTREMITY [None]
  - ADNEXA UTERI PAIN [None]
